FAERS Safety Report 5792951-0 (Version None)
Quarter: 2008Q2

REPORT INFORMATION
  Report Type: 
  Country: None (occurrence: None)
  Receive Date: 20080627
  Receipt Date: 20080620
  Transmission Date: 20081010
  Serious: Yes (Other)
  Sender: FDA-Public Use
  Company Number: US-AMGEN-QUU271097

PATIENT
  Sex: Female

DRUGS (4)
  1. ENBREL [Suspect]
     Indication: PSORIATIC ARTHROPATHY
     Route: 058
     Dates: start: 20021127
  2. ENBREL [Suspect]
     Indication: PSORIASIS
  3. REMICADE [Concomitant]
  4. HUMIRA [Concomitant]

REACTIONS (10)
  - ABORTION SPONTANEOUS [None]
  - ADVERSE DRUG REACTION [None]
  - EAR INFECTION [None]
  - FOETAL HEART RATE ABNORMAL [None]
  - INJECTION SITE BRUISING [None]
  - INJECTION SITE ERYTHEMA [None]
  - INJECTION SITE PAIN [None]
  - PAIN [None]
  - PSORIASIS [None]
  - VAGINAL INFECTION [None]
